FAERS Safety Report 8215051-9 (Version None)
Quarter: 2012Q1

REPORT INFORMATION
  Report Type: 
  Country: None (occurrence: None)
  Receive Date: 20120316
  Receipt Date: 20120313
  Transmission Date: 20120608
  Serious: No
  Sender: FDA-Public Use
  Company Number: US-BAYER-2011-001593

PATIENT
  Age: 57 Year
  Sex: Female

DRUGS (5)
  1. MOBIC [Concomitant]
  2. ANTIHYPERTENSIVES [Concomitant]
  3. SYNTHROID [Concomitant]
  4. BETASERON [Suspect]
     Indication: RELAPSING-REMITTING MULTIPLE SCLEROSIS
     Dosage: 8 MIU, QOD, BETAJECT
     Route: 058
     Dates: start: 20090328
  5. LEXAPRO [Concomitant]

REACTIONS (6)
  - INJECTION SITE DISCOLOURATION [None]
  - INJECTION SITE SCAB [None]
  - INJECTION SITE INDURATION [None]
  - INJECTION SITE MASS [None]
  - INJECTION SITE RASH [None]
  - INJECTION SITE REACTION [None]
